FAERS Safety Report 13726575 (Version 2)
Quarter: 2017Q3

REPORT INFORMATION
  Report Type: Spontaneous
  Country: KW (occurrence: KW)
  Receive Date: 20170706
  Receipt Date: 20170726
  Transmission Date: 20171127
  Serious: Yes (Other)
  Sender: FDA-Public Use
  Company Number: KW-ABBVIE-17P-091-2028778-00

PATIENT
  Age: 9 Year
  Sex: Male

DRUGS (9)
  1. RISPERIDONE. [Suspect]
     Active Substance: RISPERIDONE
     Indication: AUTISM SPECTRUM DISORDER
     Route: 065
  2. VALPROIC ACID. [Suspect]
     Active Substance: VALPROIC ACID
     Indication: AUTISM SPECTRUM DISORDER
     Route: 065
  3. CLONIDINE. [Suspect]
     Active Substance: CLONIDINE
     Indication: AUTISM SPECTRUM DISORDER
     Route: 065
  4. CLONAZEPAM. [Suspect]
     Active Substance: CLONAZEPAM
     Indication: AUTISM SPECTRUM DISORDER
     Route: 065
  5. NALTREXONE [Suspect]
     Active Substance: NALTREXONE
     Indication: AUTISM SPECTRUM DISORDER
     Route: 065
  6. ARIPIPRAZOLE. [Suspect]
     Active Substance: ARIPIPRAZOLE
     Route: 065
  7. ARIPIPRAZOLE. [Suspect]
     Active Substance: ARIPIPRAZOLE
     Indication: AUTISM SPECTRUM DISORDER
     Route: 065
  8. ARIPIPRAZOLE. [Suspect]
     Active Substance: ARIPIPRAZOLE
     Route: 065
  9. LITHIUM. [Suspect]
     Active Substance: LITHIUM
     Indication: AUTISM SPECTRUM DISORDER
     Route: 065

REACTIONS (9)
  - Therapeutic response decreased [Unknown]
  - Liver function test increased [Recovered/Resolved]
  - Off label use [Unknown]
  - Weight increased [Recovered/Resolved]
  - Tremor [Recovered/Resolved]
  - Blood prolactin increased [Recovered/Resolved]
  - Muscle rigidity [Recovered/Resolved]
  - Bradycardia [Recovered/Resolved]
  - Salivary hypersecretion [Recovered/Resolved]
